FAERS Safety Report 8508377-2 (Version None)
Quarter: 2012Q3

REPORT INFORMATION
  Report Type: 
  Country: None (occurrence: None)
  Receive Date: 20120713
  Receipt Date: 20120709
  Transmission Date: 20120928
  Serious: Yes (Other)
  Sender: FDA-Public Use
  Company Number: PHHY2012DE037681

PATIENT
  Sex: Male
  Weight: 90 kg

DRUGS (3)
  1. LAMOTRIGINE [Concomitant]
     Indication: EPILEPSY
     Dosage: 100 MG, QD
     Dates: start: 20000101
  2. VALPROIC ACID [Concomitant]
     Indication: EPILEPSY
     Dosage: 500 MG, QD
     Route: 048
     Dates: start: 20000101
  3. GILENYA [Suspect]
     Indication: MULTIPLE SCLEROSIS
     Dosage: 0.5 MG, QD
     Route: 048
     Dates: start: 20120419, end: 20120424

REACTIONS (4)
  - COUGH [None]
  - ABDOMINAL PAIN [None]
  - DYSPNOEA [None]
  - ASTHMA [None]
